FAERS Safety Report 7518766-0 (Version None)
Quarter: 2011Q2

REPORT INFORMATION
  Report Type: 
  Country: None (occurrence: None)
  Receive Date: 20110602
  Receipt Date: 20110531
  Transmission Date: 20111010
  Serious: Yes (Life-Threatening, Hospitalization)
  Sender: FDA-Public Use
  Company Number: PHHO2011DE05030

PATIENT
  Sex: Male
  Weight: 87 kg

DRUGS (2)
  1. GILENYA [Suspect]
     Indication: MULTIPLE SCLEROSIS
     Dosage: 0.5 MG, QD
     Route: 048
     Dates: start: 20101210, end: 20110321
  2. NOVAMINSULFON [Concomitant]
     Indication: PAIN

REACTIONS (1)
  - ADENOCARCINOMA [None]
